FAERS Safety Report 5421021-6 (Version None)
Quarter: 2007Q3

REPORT INFORMATION
  Report Type: 
  Country: None (occurrence: None)
  Receive Date: 20070821
  Receipt Date: 20070815
  Transmission Date: 20080115
  Serious: Yes (Hospitalization)
  Sender: FDA-Public Use
  Company Number: HQWYE631617AUG07

PATIENT
  Age: 73 Year
  Sex: Female
  Weight: 66.28 kg

DRUGS (7)
  1. ADVIL LIQUI-GELS [Suspect]
     Indication: BACK PAIN
     Dosage: 1 CAPSULE TWICE DAILY AS NEEDED
     Route: 048
     Dates: start: 20070701
  2. LISINOPRIL [Concomitant]
     Dosage: UNKNOWN
     Route: 048
  3. PREMARIN [Concomitant]
     Indication: HOT FLUSH
     Dosage: UNKNOWN
     Route: 065
  4. GEMFIBROZIL [Concomitant]
     Indication: HYPERCHOLESTEROLAEMIA
     Dosage: UNKNOWN
     Route: 048
  5. ASPIRIN [Concomitant]
     Dosage: UNKNOWN
     Route: 048
  6. LASIX [Concomitant]
     Indication: FLUID RETENTION
     Dosage: UNKNOWN
     Route: 048
  7. SIMVASTATIN [Concomitant]
     Indication: HYPERCHOLESTEROLAEMIA
     Dosage: UNKNOWN
     Route: 048

REACTIONS (2)
  - CONDITION AGGRAVATED [None]
  - ULCER [None]
